FAERS Safety Report 8458734-8 (Version None)
Quarter: 2012Q2

REPORT INFORMATION
  Report Type: 
  Country: None (occurrence: None)
  Receive Date: 20120618
  Receipt Date: 20120607
  Transmission Date: 20120825
  Serious: Yes (Death)
  Sender: FDA-Public Use
  Company Number: ADR-UNK-061

PATIENT
  Sex: Female
  Weight: 1.74 kg

DRUGS (2)
  1. LAMIVUDINE + ZIDOVUDINE [Suspect]
     Indication: ACQUIRED IMMUNODEFICIENCY SYNDROME
     Dosage: 2 TAB/CAPS/ORAL
     Route: 048
     Dates: start: 20110221
  2. LOPINAVIR+RITONAVIR (KALETRA, ALUVIA, LPV/R)) [Concomitant]

REACTIONS (2)
  - MATERNAL DRUGS AFFECTING FOETUS [None]
  - STILLBIRTH [None]
